FAERS Safety Report 5574749-1 (Version None)
Quarter: 2007Q4

REPORT INFORMATION
  Report Type: 
  Country: None (occurrence: None)
  Receive Date: 20071226
  Receipt Date: 20071226
  Transmission Date: 20080405
  Serious: No
  Sender: FDA-Public Use
  Company Number: None

PATIENT
  Age: 24 Year
  Sex: Female
  Weight: 70.8 kg

DRUGS (1)
  1. RITUXIMAB 10MG/ML [Suspect]
     Indication: CHEMOTHERAPY
     Dosage: 1000MG X 1 DOSE IV
     Route: 042

REACTIONS (4)
  - ERYTHEMA [None]
  - INFUSION RELATED REACTION [None]
  - THROAT TIGHTNESS [None]
  - VASCULITIS [None]
